FAERS Safety Report 5177198-3 (Version None)
Quarter: 2006Q4

REPORT INFORMATION
  Report Type: 
  Country: None (occurrence: None)
  Receive Date: 20061218
  Receipt Date: 20061205
  Transmission Date: 20070319
  Serious: Yes (Other)
  Sender: FDA-Public Use
  Company Number: IL-BRISTOL-MYERS SQUIBB COMPANY-13601968

PATIENT
  Age: 34 Year
  Sex: Female

DRUGS (2)
  1. ENOXAPARIN SODIUM [Suspect]
     Indication: PROPHYLAXIS
     Dosage: ENOXAPARIN DOSAGE REDUCED FROM80MG, 5MG, THAN INCREASED TO 7.5MG
     Route: 058
     Dates: start: 20061113, end: 20061122
  2. VITAMIN K [Concomitant]
     Dates: start: 20061204, end: 20061204

REACTIONS (1)
  - UTERINE HAEMORRHAGE [None]
